FAERS Safety Report 7618402-9 (Version None)
Quarter: 2011Q3

REPORT INFORMATION
  Report Type: 
  Country: None (occurrence: None)
  Receive Date: 20110718
  Receipt Date: 20110707
  Transmission Date: 20111222
  Serious: Yes (Hospitalization, Other)
  Sender: FDA-Public Use
  Company Number: PHHY2009JP13357

PATIENT
  Sex: Male
  Weight: 16 kg

DRUGS (36)
  1. CERTICAN [Suspect]
     Dosage: 8 MG, UNK
     Dates: start: 20100129, end: 20100209
  2. NEORAL [Concomitant]
     Indication: HEART TRANSPLANT
     Dosage: 225 MG, UNK
     Route: 048
     Dates: start: 19990801
  3. NEORAL [Concomitant]
     Dosage: 100 MG, UNK
     Route: 048
  4. NEORAL [Concomitant]
     Dosage: 150 MG, UNK
     Route: 048
  5. NEORAL [Concomitant]
     Dosage: 100 MG, UNK
     Route: 048
  6. NEORAL [Concomitant]
     Dosage: 100 MG, UNK
     Dates: end: 20081009
  7. DIART [Concomitant]
     Indication: CARDIAC FAILURE
     Dosage: 60 MG, UNK
     Route: 048
  8. CERTICAN [Suspect]
     Dosage: 4.5 MG, UNK
     Route: 048
     Dates: start: 20080907, end: 20080916
  9. CERTICAN [Suspect]
     Dosage: 7.75 MG, UNK
     Dates: start: 20091223, end: 20100128
  10. CERTICAN [Suspect]
     Dosage: 7.5 MG, UNK
     Dates: start: 20100210
  11. NEORAL [Concomitant]
     Dosage: 50 MG, UNK
  12. ENALAPRIL MALEATE [Concomitant]
     Indication: HYPERTENSION
     Dosage: 2.5 MG, UNK
  13. CERTICAN [Suspect]
     Dosage: 3 MG,DAILY
     Route: 048
     Dates: start: 20080918, end: 20080927
  14. CERTICAN [Suspect]
     Dosage: 5.75 MG, UNK
     Route: 048
     Dates: start: 20081018, end: 20081028
  15. CERTICAN [Suspect]
     Dosage: 6 MG, UNK
     Route: 048
     Dates: start: 20081029, end: 20081201
  16. NEORAL [Concomitant]
     Dosage: 125 MG, UNK
     Route: 048
  17. CERTICAN [Suspect]
     Dosage: 2 MG, UNK
     Route: 048
     Dates: start: 20080809, end: 20080822
  18. CERTICAN [Suspect]
     Dosage: 3.5 MG, UNK
     Route: 048
     Dates: start: 20080823, end: 20080906
  19. CERTICAN [Suspect]
     Dosage: 5.5 MG, UNK
     Route: 048
     Dates: start: 20081009, end: 20081017
  20. CERTICAN [Suspect]
     Dosage: 7.5 MG, UNK
     Dates: start: 20090210, end: 20090316
  21. CERTICAN [Suspect]
     Dosage: 7.75 MG, UNK
     Dates: start: 20090317, end: 20090529
  22. DOPAMINE HCL [Suspect]
     Indication: CARDIAC FAILURE CONGESTIVE
     Dosage: UNK UKN, UNK
     Dates: start: 20080902, end: 20080917
  23. CERTICAN [Suspect]
     Dosage: 0.50 MG, UNK
     Route: 048
     Dates: start: 20080726, end: 20080730
  24. CERTICAN [Suspect]
     Dosage: 4.5 MG, UNK
     Route: 048
     Dates: start: 20081001, end: 20081008
  25. CERTICAN [Suspect]
     Dosage: 7 MG, UNK
     Dates: start: 20090120, end: 20090209
  26. CERTICAN [Suspect]
     Dosage: 9.75 MG, UNK
     Dates: start: 20091111, end: 20091207
  27. ALDACTONE [Concomitant]
  28. CERTICAN [Suspect]
     Indication: HEART TRANSPLANT
     Dosage: 0.25 MG, UNK
     Route: 048
     Dates: start: 20080722, end: 20080725
  29. CERTICAN [Suspect]
     Dosage: 1 MG, UNK
     Route: 048
     Dates: start: 20080731, end: 20080808
  30. CERTICAN [Suspect]
     Dosage: 4.25 MG, UNK
     Route: 048
     Dates: start: 20080917, end: 20080917
  31. CERTICAN [Suspect]
     Dosage: 4.75 MG, UNK
     Route: 048
     Dates: start: 20080928, end: 20080930
  32. CERTICAN [Suspect]
     Dosage: 6.75 MG, UNK
     Dates: start: 20090111, end: 20090119
  33. CERTICAN [Suspect]
     Dosage: 8.0 MG, UNK
     Dates: start: 20090530, end: 20090703
  34. CERTICAN [Suspect]
     Dosage: 6.5 MG, UNK
     Route: 048
     Dates: start: 20081202, end: 20090110
  35. CERTICAN [Suspect]
     Dosage: 8.25 MG, UNK
     Dates: start: 20090704, end: 20091110
  36. CERTICAN [Suspect]
     Dosage: 9 MG, UNK
     Dates: start: 20091208, end: 20091222

REACTIONS (8)
  - BACTERIAL INFECTION [None]
  - SEPSIS [None]
  - PYREXIA [None]
  - GAMMA-GLUTAMYLTRANSFERASE INCREASED [None]
  - APPENDICITIS [None]
  - BLOOD ALKALINE PHOSPHATASE INCREASED [None]
  - NECROSIS [None]
  - SUBCUTANEOUS ABSCESS [None]
